FAERS Safety Report 10739673 (Version 1)
Quarter: 2015Q1

REPORT INFORMATION
  Report Type: Spontaneous
  Country: US (occurrence: US)
  Receive Date: 20150127
  Receipt Date: 20150127
  Transmission Date: 20150721
  Serious: Yes (Hospitalization, Other)
  Sender: FDA-Public Use
  Company Number: US-JNJFOC-20150111156

PATIENT
  Age: 15 Year
  Sex: Female

DRUGS (1)
  1. TYLENOL ARTHRITIS PAIN [Suspect]
     Active Substance: ACETAMINOPHEN
     Indication: SUICIDE ATTEMPT
     Dosage: TOTAL OF 20-21 TABLETS
     Route: 048
     Dates: start: 20071209

REACTIONS (1)
  - Intentional overdose [Unknown]
